FAERS Safety Report 5754708-6 (Version None)
Quarter: 2008Q2

REPORT INFORMATION
  Report Type: 
  Country: None (occurrence: None)
  Receive Date: 20080527
  Receipt Date: 20080506
  Transmission Date: 20081010
  Serious: Yes (Hospitalization, Disabling)
  Sender: FDA-Public Use
  Company Number: 2008AL003544

PATIENT
  Sex: Male

DRUGS (1)
  1. DIGOXIN [Suspect]

REACTIONS (8)
  - CARDIAC PACEMAKER INSERTION [None]
  - CONVULSION [None]
  - DIZZINESS [None]
  - DYSSTASIA [None]
  - HALLUCINATION [None]
  - POSTURE ABNORMAL [None]
  - TINNITUS [None]
  - WEIGHT DECREASED [None]
